FAERS Safety Report 10901405 (Version 3)
Quarter: 2015Q2

REPORT INFORMATION
  Report Type: Spontaneous
  Country: US (occurrence: US)
  Receive Date: 20150310
  Receipt Date: 20150513
  Transmission Date: 20150821
  Serious: Yes (Death, Hospitalization)
  Sender: FDA-Public Use
  Company Number: US-PFIZER INC-2015084453

PATIENT
  Age: 49 Year
  Sex: Male

DRUGS (1)
  1. SUTENT [Suspect]
     Active Substance: SUNITINIB MALATE
     Indication: SARCOMA METASTATIC
     Dosage: UNK
     Route: 048

REACTIONS (3)
  - Disease progression [Fatal]
  - Sarcoma metastatic [Fatal]
  - Product use issue [Unknown]
